FAERS Safety Report 10896314 (Version 3)
Quarter: 2015Q2

REPORT INFORMATION
  Report Type: Spontaneous
  Country: US (occurrence: US)
  Receive Date: 20150309
  Receipt Date: 20150506
  Transmission Date: 20150821
  Serious: Yes (Hospitalization, Other)
  Sender: FDA-Public Use
  Company Number: US-UCBSA-2015002356

PATIENT
  Age: 30 Year
  Sex: Male
  Weight: 106.1 kg

DRUGS (5)
  1. CIMZIA [Suspect]
     Active Substance: CERTOLIZUMAB PEGOL
     Dosage: 400 MG, EV 2 WEEKS(QOW)
     Dates: start: 201412
  2. CIMZIA [Suspect]
     Active Substance: CERTOLIZUMAB PEGOL
     Indication: CROHN^S DISEASE
     Dosage: 400 MG, EV 4 WEEKS
     Route: 058
  3. CIMZIA [Suspect]
     Active Substance: CERTOLIZUMAB PEGOL
     Dosage: 200 MG,
  4. PREDNISONE. [Concomitant]
     Active Substance: PREDNISONE
     Indication: PRODUCT USED FOR UNKNOWN INDICATION
     Dosage: OFF AND ON SINCE OCT-2014
     Route: 048
     Dates: start: 201410
  5. SULFASALAZINE. [Concomitant]
     Active Substance: SULFASALAZINE
     Indication: CROHN^S DISEASE
     Dosage: 2 DF, 3X/DAY (TID)
     Route: 048

REACTIONS (8)
  - Intestinal perforation [Recovering/Resolving]
  - Volvulus [Recovering/Resolving]
  - Surgery [Recovered/Resolved]
  - Crohn^s disease [Recovering/Resolving]
  - Intestinal ulcer [Recovered/Resolved]
  - Off label use [Unknown]
  - Hospitalisation [Not Recovered/Not Resolved]
  - Abscess intestinal [Recovering/Resolving]

NARRATIVE: CASE EVENT DATE: 201409
